FAERS Safety Report 24390504 (Version 4)
Quarter: 2025Q1

REPORT INFORMATION
  Report Type: Report from Study
  Country: MY (occurrence: MY)
  Receive Date: 20241003
  Receipt Date: 20250131
  Transmission Date: 20250408
  Serious: Yes (Hospitalization, Other)
  Sender: EXELIXIS
  Company Number: MY-IPSEN Group, Research and Development-2024-04617

PATIENT
  Age: 41 Year
  Sex: Male
  Weight: 88 kg

DRUGS (3)
  1. CABOMETYX [Suspect]
     Active Substance: CABOZANTINIB S-MALATE
     Indication: Renal cell carcinoma
     Dosage: 60 MG, QD
     Route: 048
     Dates: start: 202401
  2. CABOMETYX [Suspect]
     Active Substance: CABOZANTINIB S-MALATE
     Route: 065
     Dates: end: 20241129
  3. CABOMETYX [Suspect]
     Active Substance: CABOZANTINIB S-MALATE
     Route: 048
     Dates: start: 20241218

REACTIONS (9)
  - Abscess [Recovering/Resolving]
  - Abscess drainage [Unknown]
  - Anal abscess [Recovering/Resolving]
  - Inflammation [Recovering/Resolving]
  - Immune system disorder [Recovering/Resolving]
  - Skin irritation [Recovering/Resolving]
  - Dyspepsia [Recovering/Resolving]
  - Off label use [Unknown]
  - Off label use [Unknown]

NARRATIVE: CASE EVENT DATE: 20240829
